FAERS Safety Report 20620612 (Version 3)
Quarter: 2022Q3

REPORT INFORMATION
  Report Type: Spontaneous
  Country: BR (occurrence: BR)
  Receive Date: 20220322
  Receipt Date: 20220707
  Transmission Date: 20221027
  Serious: Yes (Hospitalization, Other)
  Sender: FDA-Public Use
  Company Number: BR-GLAXOSMITHKLINE-BR2022AMR047608

PATIENT

DRUGS (2)
  1. FLUTICASONE FUROATE\VILANTEROL TRIFENATATE [Suspect]
     Active Substance: FLUTICASONE FUROATE\VILANTEROL TRIFENATATE
     Indication: Asthma
     Dosage: 1 PUFF(S), QD, 100/25MCG X 30 DOSES, , 1 TIME A DAY, 1 JET PER DAY
     Route: 055
  2. FLUTICASONE FUROATE\VILANTEROL TRIFENATATE [Suspect]
     Active Substance: FLUTICASONE FUROATE\VILANTEROL TRIFENATATE
     Indication: Bronchitis

REACTIONS (6)
  - Asthmatic crisis [Unknown]
  - Bronchitis [Unknown]
  - Suffocation feeling [Unknown]
  - Incorrect dose administered [Unknown]
  - Treatment noncompliance [Unknown]
  - Product complaint [Unknown]
